FAERS Safety Report 14889452 (Version 1)
Quarter: 2018Q2

REPORT INFORMATION
  Report Type: Spontaneous
  Country: PT (occurrence: PT)
  Receive Date: 20180514
  Receipt Date: 20180514
  Transmission Date: 20180711
  Serious: Yes (Other)
  Sender: FDA-Public Use
  Company Number: PT-WEST-WARD PHARMACEUTICALS CORP.-PT-H14001-18-03810

PATIENT
  Age: 6 Year
  Sex: Female
  Weight: 25 kg

DRUGS (2)
  1. CEFUROXIMA HIKMA [Suspect]
     Active Substance: CEFUROXIME
     Indication: OSTEOMYELITIS ACUTE
     Dosage: 150 MG/KG/DIA ENDOVENOSO
     Route: 042
     Dates: start: 20180105, end: 20180129
  2. PARACETAMOL [Concomitant]
     Active Substance: ACETAMINOPHEN
     Indication: PRODUCT USED FOR UNKNOWN INDICATION
     Dosage: ()
     Route: 065

REACTIONS (8)
  - Thrombocytopenia [Recovered/Resolved]
  - Epstein-Barr virus infection [Recovered/Resolved]
  - Vomiting [Recovered/Resolved]
  - Rash [Recovered/Resolved]
  - Neutropenia [Recovered/Resolved]
  - Rash maculo-papular [Recovered/Resolved]
  - Rash generalised [Recovered/Resolved]
  - Pyrexia [Recovered/Resolved]

NARRATIVE: CASE EVENT DATE: 201801
